FAERS Safety Report 25003137 (Version 2)
Quarter: 2025Q2

REPORT INFORMATION
  Report Type: Spontaneous
  Country: US (occurrence: US)
  Receive Date: 20250224
  Receipt Date: 20250402
  Transmission Date: 20250717
  Serious: Yes (Hospitalization, Other)
  Sender: AMGEN
  Company Number: US-AMGEN-USASP2025032081

PATIENT
  Age: 23 Year
  Sex: Female

DRUGS (7)
  1. IVABRADINE [Suspect]
     Active Substance: IVABRADINE
     Indication: Inappropriate sinus tachycardia
     Route: 048
  2. IVABRADINE [Suspect]
     Active Substance: IVABRADINE
     Indication: Off label use
  3. MIDODRINE [Concomitant]
     Active Substance: MIDODRINE
     Indication: Inappropriate sinus tachycardia
  4. CLONIDINE [Concomitant]
     Active Substance: CLONIDINE
     Indication: Inappropriate sinus tachycardia
  5. DESMOPRESSIN [Concomitant]
     Active Substance: DESMOPRESSIN
     Indication: Inappropriate sinus tachycardia
  6. BUPIVACAINE [Concomitant]
     Active Substance: BUPIVACAINE
  7. ROPIVACAINE [Concomitant]
     Active Substance: ROPIVACAINE

REACTIONS (4)
  - Palpitations [Recovering/Resolving]
  - Horner^s syndrome [Unknown]
  - Infection [Unknown]
  - Off label use [Unknown]
